FAERS Safety Report 11410348 (Version 1)
Quarter: 2015Q3

REPORT INFORMATION
  Report Type: Spontaneous
  Country: US (occurrence: US)
  Receive Date: 20150824
  Receipt Date: 20150824
  Transmission Date: 20151125
  Serious: No
  Sender: FDA-Public Use
  Company Number: US-DRREDDYS-USA/USA/15/0048773

PATIENT
  Sex: Female
  Weight: 55.7 kg

DRUGS (1)
  1. SUMATRIPTAN INJECTION USP, 6 MG/0.5 ML [Suspect]
     Active Substance: SUMATRIPTAN
     Indication: MIGRAINE
     Dates: start: 2014

REACTIONS (3)
  - Injection site haemorrhage [Recovered/Resolved]
  - Product physical issue [Unknown]
  - Injection site erythema [Recovered/Resolved]
